FAERS Safety Report 7249429-7 (Version None)
Quarter: 2011Q1

REPORT INFORMATION
  Report Type: 
  Country: None (occurrence: None)
  Receive Date: 20110128
  Receipt Date: 20101220
  Transmission Date: 20110831
  Serious: Yes (Hospitalization)
  Sender: FDA-Public Use
  Company Number: DE-BAYER-2010-006186

PATIENT
  Age: 68 Year
  Sex: Male
  Weight: 80 kg

DRUGS (3)
  1. CIPROFLOXACIN BETAIN [Suspect]
     Indication: URINARY TRACT INFECTION
     Dosage: 400 MG, BID
     Route: 042
     Dates: start: 20100829, end: 20100902
  2. VALORON [Concomitant]
     Indication: BACK PAIN
     Dosage: 1 DF, BID
     Route: 048
     Dates: start: 20100830
  3. ARCOXIA [Concomitant]
     Indication: BACK PAIN
     Dosage: 60 MG, QD
     Route: 048
     Dates: start: 20100501

REACTIONS (2)
  - PETECHIAE [None]
  - LEUKOCYTOCLASTIC VASCULITIS [None]
